FAERS Safety Report 4688392-X (Version None)
Quarter: 2005Q2

REPORT INFORMATION
  Report Type: 
  Country: None (occurrence: None)
  Receive Date: 20050610
  Receipt Date: 20050610
  Transmission Date: 20051028
  Serious: Yes (Other)
  Sender: FDA-Public Use
  Company Number: None

PATIENT
  Age: 60 Year
  Sex: Female
  Weight: 85 kg

DRUGS (1)
  1. XOLAIR [Suspect]
     Indication: ASTHMA
     Dosage: 375 MG Q 2 WKS SUBQ
     Route: 058
     Dates: start: 20031009, end: 20031023

REACTIONS (2)
  - ARTHRITIS [None]
  - OEDEMA PERIPHERAL [None]
